FAERS Safety Report 6311373-7 (Version None)
Quarter: 2009Q3

REPORT INFORMATION
  Report Type: 
  Country: None (occurrence: None)
  Receive Date: 20090817
  Receipt Date: 20090807
  Transmission Date: 20100115
  Serious: No
  Sender: FDA-Public Use
  Company Number: PHEH2009US06328

PATIENT
  Sex: Female

DRUGS (14)
  1. RECLAST [Suspect]
     Dosage: UNK, ONCE/SINGLE USE
     Dates: start: 20090522, end: 20090522
  2. NITROGLYCERIN [Concomitant]
     Indication: ANGINA PECTORIS
  3. LIPITOR [Concomitant]
     Dosage: 10 MG, UNK
  4. DILTIAZEM [Concomitant]
     Dosage: 30 MG, UNK
  5. RAMIPRIL [Concomitant]
     Dosage: 2.5 MG, UNK
  6. FAMOTIDINE [Concomitant]
     Dosage: 40 MG, UNK
  7. SINGULAIR [Concomitant]
     Dosage: 10 MG, UNK
  8. PROPYL-THIOURACIL [Concomitant]
     Dosage: 50 MG, UNK
  9. OXYBUTYNIN [Concomitant]
     Dosage: 10 MG, UNK
  10. ASPIRIN [Concomitant]
     Dosage: 81 MG, UNK
  11. CALCIUM WITH VITAMIN D [Concomitant]
  12. VITAMIN E [Concomitant]
  13. LOVAZA [Concomitant]
  14. TYLENOL (CAPLET) [Concomitant]

REACTIONS (1)
  - OROPHARYNGEAL PAIN [None]
